FAERS Safety Report 24582177 (Version 2)
Quarter: 2024Q4

REPORT INFORMATION
  Report Type: Report from Study
  Country: US (occurrence: US)
  Receive Date: 20241105
  Receipt Date: 20241230
  Transmission Date: 20250115
  Serious: Yes (Hospitalization, Other)
  Sender: ABBVIE
  Company Number: US-ABBVIE-5987649

PATIENT
  Age: 65 Year
  Sex: Female

DRUGS (2)
  1. SKYRIZI [Suspect]
     Active Substance: RISANKIZUMAB-RZAA
     Indication: Psoriatic arthropathy
     Route: 058
     Dates: start: 20240830, end: 20241124
  2. SKYRIZI [Suspect]
     Active Substance: RISANKIZUMAB-RZAA
     Route: 058
     Dates: start: 20230511

REACTIONS (7)
  - Urosepsis [Not Recovered/Not Resolved]
  - Muscular weakness [Unknown]
  - Endotoxic shock [Recovering/Resolving]
  - COVID-19 [Unknown]
  - Cerebrovascular accident [Recovering/Resolving]
  - Loss of personal independence in daily activities [Unknown]
  - Urinary tract infection [Not Recovered/Not Resolved]

NARRATIVE: CASE EVENT DATE: 20240101
